FAERS Safety Report 16640592 (Version 2)
Quarter: 2019Q3

REPORT INFORMATION
  Report Type: Report from Study
  Country: US (occurrence: US)
  Receive Date: 20190729
  Receipt Date: 20190731
  Transmission Date: 20191004
  Serious: No
  Sender: FDA-Public Use
  Company Number: PHEH2019US031205

PATIENT
  Age: 41 Year
  Sex: Female

DRUGS (1)
  1. GILENYA [Suspect]
     Active Substance: FINGOLIMOD HYDROCHLORIDE
     Indication: MULTIPLE SCLEROSIS
     Dosage: 0.5 MG, QD
     Route: 048
     Dates: start: 20190723

REACTIONS (7)
  - Somnolence [Unknown]
  - Fatigue [Unknown]
  - Asthenia [Unknown]
  - Burning sensation [Unknown]
  - Nervousness [Unknown]
  - Peripheral coldness [Unknown]
  - Headache [Unknown]

NARRATIVE: CASE EVENT DATE: 20190723
